FAERS Safety Report 6565527-5 (Version None)
Quarter: 2010Q1

REPORT INFORMATION
  Report Type: 
  Country: None (occurrence: None)
  Receive Date: 20100201
  Receipt Date: 20100129
  Transmission Date: 20100710
  Serious: Yes (Hospitalization)
  Sender: FDA-Public Use
  Company Number: DE-WYE-G05383410

PATIENT
  Sex: Male
  Weight: 102 kg

DRUGS (1)
  1. REFACTO [Suspect]
     Indication: FACTOR VIII DEFICIENCY
     Dosage: 2000 IU 1 TIME PER 3 DAYS
     Route: 042
     Dates: start: 20071203, end: 20080519

REACTIONS (3)
  - DRUG INEFFECTIVE [None]
  - HAEMARTHROSIS [None]
  - HAEMATOSPERMIA [None]
